FAERS Safety Report 14020505 (Version 2)
Quarter: 2017Q4

REPORT INFORMATION
  Report Type: Spontaneous
  Country: US (occurrence: US)
  Receive Date: 20170928
  Receipt Date: 20171002
  Transmission Date: 20180321
  Serious: No
  Sender: FDA-Public Use
  Company Number: US-BAYER-2017-185951

PATIENT
  Age: 3 Year
  Sex: Male

DRUGS (1)
  1. MIRALAX [Suspect]
     Active Substance: POLYETHYLENE GLYCOL 3350
     Indication: GASTROINTESTINAL DISORDER
     Dosage: 2 TEASPOON 2 A DAY
     Route: 048
     Dates: start: 201709

REACTIONS (6)
  - Incorrect dosage administered [Unknown]
  - Inappropriate prescribing [Unknown]
  - Product contamination physical [Unknown]
  - Incorrect dose administered [Unknown]
  - Drug administered to patient of inappropriate age [Unknown]
  - Poor quality drug administered [Unknown]
